FAERS Safety Report 11992236 (Version 1)
Quarter: 2016Q1

REPORT INFORMATION
  Report Type: Spontaneous
  Country: US (occurrence: US)
  Receive Date: 20160203
  Receipt Date: 20160203
  Transmission Date: 20160526
  Serious: No
  Sender: FDA-Public Use
  Company Number: US-JNJFOC-20151221770

PATIENT
  Age: 16 Year
  Sex: Female
  Weight: 52.16 kg

DRUGS (1)
  1. TYLENOL EXTRA STRENGTH [Suspect]
     Active Substance: ACETAMINOPHEN
     Indication: GASTROENTERITIS VIRAL
     Dosage: 1 CAPLET EVERY 4 TO 6 HOURS
     Route: 048
     Dates: start: 20151220

REACTIONS (4)
  - Off label use [Unknown]
  - Drug ineffective for unapproved indication [Unknown]
  - Chest pain [Not Recovered/Not Resolved]
  - Product use issue [Unknown]
